FAERS Safety Report 24272252 (Version 1)
Quarter: 2024Q3

REPORT INFORMATION
  Report Type: Spontaneous
  Country: CA (occurrence: CA)
  Receive Date: 20240902
  Receipt Date: 20240902
  Transmission Date: 20241016
  Serious: Yes (Other)
  Sender: CHEPLAPHARM
  Company Number: CA-CHEPLA-2024011055

PATIENT
  Age: 8 Year
  Sex: Female

DRUGS (3)
  1. HYDROXYUREA [Suspect]
     Active Substance: HYDROXYUREA
     Indication: Myeloproliferative neoplasm
  2. HEPARIN [Suspect]
     Active Substance: HEPARIN SODIUM
  3. ASPIRIN [Suspect]
     Active Substance: ASPIRIN

REACTIONS (4)
  - Budd-Chiari syndrome [Unknown]
  - Bile duct stenosis [Recovered/Resolved]
  - Post procedural bile leak [Recovered/Resolved]
  - Off label use [Unknown]

NARRATIVE: CASE EVENT DATE: 20171001
